FAERS Safety Report 23946095 (Version 1)
Quarter: 2024Q2

REPORT INFORMATION
  Report Type: Spontaneous
  Country: FR (occurrence: FR)
  Receive Date: 20240606
  Receipt Date: 20240606
  Transmission Date: 20240715
  Serious: Yes (Other)
  Sender: FDA-Public Use
  Company Number: FR-UCBSA-2024027671

PATIENT
  Age: 64 Year
  Sex: Female

DRUGS (1)
  1. BIMZELX [Suspect]
     Active Substance: BIMEKIZUMAB-BKZX
     Indication: Psoriasis
     Dosage: 320 MILLIGRAM, UNK
     Dates: start: 20230713

REACTIONS (4)
  - Dermo-hypodermitis [Unknown]
  - Psoriasis [Recovered/Resolved]
  - Paradoxical drug reaction [Unknown]
  - Candida infection [Unknown]

NARRATIVE: CASE EVENT DATE: 20230801
